FAERS Safety Report 10171939 (Version 3)
Quarter: 2014Q3

REPORT INFORMATION
  Report Type: Spontaneous
  Country: GB (occurrence: GB)
  Receive Date: 20140515
  Receipt Date: 20140827
  Transmission Date: 20150326
  Serious: Yes (Death, Other)
  Sender: FDA-Public Use
  Company Number: GB-PFIZER INC-2014128685

PATIENT
  Age: 82 Year
  Sex: Female
  Weight: 59.4 kg

DRUGS (8)
  1. FLUOXETINE [Concomitant]
     Active Substance: FLUOXETINE\FLUOXETINE HYDROCHLORIDE
     Dosage: UNK
  2. SALBUTAMOL [Concomitant]
     Active Substance: ALBUTEROL
     Dosage: UNK
  3. IBUPROFEN. [Suspect]
     Active Substance: IBUPROFEN
     Indication: BACK PAIN
     Dosage: 400 MG, 3X/DAY WHEN REQUIRED
     Route: 048
     Dates: start: 20130307, end: 20140414
  4. AMLODIPINE [Concomitant]
     Active Substance: AMLODIPINE BESYLATE
     Dosage: UNK
  5. BENDROFLUMETHIAZIDE [Concomitant]
     Active Substance: BENDROFLUMETHIAZIDE
     Dosage: UNK
  6. PREDNISOLONE. [Suspect]
     Active Substance: PREDNISOLONE
     Indication: CHRONIC OBSTRUCTIVE PULMONARY DISEASE
     Dosage: 30 MG, 1X/DAY
     Route: 048
     Dates: start: 20140407, end: 20140414
  7. CODEINE [Concomitant]
     Active Substance: CODEINE
     Dosage: UNK
  8. SIMVASTATIN. [Concomitant]
     Active Substance: SIMVASTATIN
     Dosage: UNK

REACTIONS (10)
  - Pleural effusion [Unknown]
  - Multi-organ failure [Unknown]
  - Depressed level of consciousness [Unknown]
  - Duodenal ulcer perforation [Fatal]
  - Intra-abdominal haemorrhage [Unknown]
  - Infection [Unknown]
  - Ascites [Unknown]
  - Sepsis [Fatal]
  - Vascular pseudoaneurysm [Unknown]
  - Lung consolidation [Unknown]

NARRATIVE: CASE EVENT DATE: 201404
